FAERS Safety Report 17995469 (Version 1)
Quarter: 2020Q3

REPORT INFORMATION
  Report Type: Spontaneous
  Country: CA (occurrence: CA)
  Receive Date: 20200708
  Receipt Date: 20200708
  Transmission Date: 20201103
  Serious: Yes (Other)
  Sender: FDA-Public Use
  Company Number: CA-TEVA-2020-CA-1797660

PATIENT
  Age: 8 Month
  Sex: Female

DRUGS (3)
  1. CERUBIDINE [Suspect]
     Active Substance: DAUNORUBICIN HYDROCHLORIDE
     Route: 065
  2. ETOPOSIDE LIQ IV 20MG/ML [Suspect]
     Active Substance: ETOPOSIDE
     Route: 065
  3. CYTARABINE INJECTION [Concomitant]
     Active Substance: CYTARABINE

REACTIONS (2)
  - Febrile neutropenia [Recovering/Resolving]
  - Pneumonia [Recovering/Resolving]
